FAERS Safety Report 7353788-4 (Version None)
Quarter: 2011Q1

REPORT INFORMATION
  Report Type: 
  Country: None (occurrence: None)
  Receive Date: 20110304
  Receipt Date: 20110225
  Transmission Date: 20110831
  Serious: Yes (Hospitalization)
  Sender: FDA-Public Use
  Company Number: 8044437

PATIENT
  Sex: Female
  Weight: 85 kg

DRUGS (12)
  1. METHOTREXATE [Concomitant]
  2. NIFEDICAL [Concomitant]
  3. FUROSEMIDE [Concomitant]
  4. LABETALOL [Concomitant]
  5. DIPHENHYDRAMINE [Concomitant]
  6. DILANTIN [Concomitant]
  7. FOLIC ACID [Concomitant]
  8. WELLBUTRIN [Concomitant]
  9. CERTOLIZUMAB PEGOL [Suspect]
     Indication: RHEUMATOID ARTHRITIS
     Dosage: (400 MG 1X/2 WEEKS SUBCUTANEOUS) ; (200 MG 1X/2 WEEKS SUBCUTANEOUS)
     Route: 058
     Dates: start: 20090107, end: 20090205
  10. CERTOLIZUMAB PEGOL [Suspect]
     Indication: RHEUMATOID ARTHRITIS
     Dosage: (400 MG 1X/2 WEEKS SUBCUTANEOUS) ; (200 MG 1X/2 WEEKS SUBCUTANEOUS)
     Route: 058
     Dates: start: 20090218, end: 20090312
  11. ENALAPRIL MALEATE [Concomitant]
  12. PREDNISONE [Concomitant]

REACTIONS (22)
  - ANTI-PLATELET ANTIBODY POSITIVE [None]
  - CLOSTRIDIAL INFECTION [None]
  - ASPARTATE AMINOTRANSFERASE INCREASED [None]
  - CARBON DIOXIDE DECREASED [None]
  - BLOOD CHLORIDE INCREASED [None]
  - BLOOD FIBRINOGEN INCREASED [None]
  - FIBRIN D DIMER INCREASED [None]
  - RENAL FAILURE ACUTE [None]
  - HYPOTENSION [None]
  - PAIN [None]
  - ANTIPHOSPHOLIPID ANTIBODIES POSITIVE [None]
  - INTERNATIONAL NORMALISED RATIO INCREASED [None]
  - ALANINE AMINOTRANSFERASE INCREASED [None]
  - TOXICITY TO VARIOUS AGENTS [None]
  - GASTROINTESTINAL HAEMORRHAGE [None]
  - URINARY TRACT INFECTION [None]
  - BLOOD ALBUMIN DECREASED [None]
  - SYNOVIAL FLUID ANALYSIS ABNORMAL [None]
  - ACTIVATED PARTIAL THROMBOPLASTIN TIME PROLONGED [None]
  - THROMBIN-ANTITHROMBIN III COMPLEX INCREASED [None]
  - PANCYTOPENIA [None]
  - BLOOD POTASSIUM DECREASED [None]
